FAERS Safety Report 6123579-0 (Version None)
Quarter: 2009Q1

REPORT INFORMATION
  Report Type: 
  Country: None (occurrence: None)
  Receive Date: 20090318
  Receipt Date: 20090318
  Transmission Date: 20090719
  Serious: No
  Sender: FDA-Public Use
  Company Number: None

PATIENT
  Sex: Male

DRUGS (5)
  1. CITALOPRAM HYDROBROMIDE [Suspect]
     Indication: ANXIETY
     Dosage: 20 -} 40 MG ONCE QD PO RX'D 10/9/08 -} INCREASED 40MG 11/20/08
     Route: 048
     Dates: start: 20081009
  2. CITALOPRAM HYDROBROMIDE [Suspect]
     Indication: TRICHOTILLOMANIA
     Dosage: 20 -} 40 MG ONCE QD PO RX'D 10/9/08 -} INCREASED 40MG 11/20/08
     Route: 048
     Dates: start: 20081009
  3. CITALOPRAM HYDROBROMIDE [Suspect]
     Indication: ANXIETY
     Dosage: 20 -} 40 MG ONCE QD PO RX'D 10/9/08 -} INCREASED 40MG 11/20/08
     Route: 048
     Dates: start: 20081120
  4. CITALOPRAM HYDROBROMIDE [Suspect]
     Indication: TRICHOTILLOMANIA
     Dosage: 20 -} 40 MG ONCE QD PO RX'D 10/9/08 -} INCREASED 40MG 11/20/08
     Route: 048
     Dates: start: 20081120
  5. CELEXA [Suspect]

REACTIONS (2)
  - DRUG INEFFECTIVE [None]
  - THERAPEUTIC RESPONSE UNEXPECTED WITH DRUG SUBSTITUTION [None]
